FAERS Safety Report 9143355 (Version 3)
Quarter: 2014Q1

REPORT INFORMATION
  Report Type: Report from Study
  Country: US (occurrence: US)
  Receive Date: 20130306
  Receipt Date: 20140314
  Transmission Date: 20141002
  Serious: Yes (Death, Hospitalization)
  Sender: FDA-Public Use
  Company Number: US-ACTELION-A-NJ2013-80147

PATIENT
  Age: 63 Year
  Sex: Female

DRUGS (6)
  1. VELETRI [Suspect]
     Indication: PULMONARY HYPERTENSION
     Dosage: 26.5 NG/KG, PER MIN
     Route: 041
     Dates: start: 20100913
  2. COUMADIN [Concomitant]
  3. SILDENAFIL [Concomitant]
  4. LETAIRIS [Concomitant]
  5. RIOCIGUAT [Concomitant]
  6. FLOLAN [Concomitant]

REACTIONS (3)
  - Pulmonary hypertension [Fatal]
  - Pneumonia [Unknown]
  - Lung infection [Unknown]
